FAERS Safety Report 7531362-4 (Version None)
Quarter: 2011Q2

REPORT INFORMATION
  Report Type: 
  Country: None (occurrence: None)
  Receive Date: 20110608
  Receipt Date: 20110525
  Transmission Date: 20111010
  Serious: Yes (Other)
  Sender: FDA-Public Use
  Company Number: PHHY2011JP45393

PATIENT
  Sex: Male

DRUGS (3)
  1. AREDIA [Suspect]
     Indication: BONE GIANT CELL TUMOUR
  2. TIENAM [Concomitant]
  3. LIPIODOL [Concomitant]

REACTIONS (2)
  - SKIN NECROSIS [None]
  - PYREXIA [None]
